FAERS Safety Report 10187073 (Version 2)
Quarter: 2014Q4

REPORT INFORMATION
  Report Type: Spontaneous
  Country: DE (occurrence: DE)
  Receive Date: 20140522
  Receipt Date: 20141008
  Transmission Date: 20150528
  Serious: Yes (Death, Hospitalization, Other)
  Sender: FDA-Public Use
  Company Number: DE-ROCHE-1403062

PATIENT
  Age: 61 Year
  Sex: Female
  Weight: 86 kg

DRUGS (6)
  1. ROACTEMRA [Suspect]
     Active Substance: TOCILIZUMAB
     Route: 042
     Dates: start: 20131202
  2. PREDNISOLON [Concomitant]
     Active Substance: PREDNISOLONE
     Indication: RHEUMATOID ARTHRITIS
     Route: 048
     Dates: start: 20050201
  3. ROACTEMRA [Suspect]
     Active Substance: TOCILIZUMAB
     Route: 042
     Dates: start: 20140203
  4. ROACTEMRA [Suspect]
     Active Substance: TOCILIZUMAB
     Route: 042
     Dates: start: 20140304
  5. ROACTEMRA [Suspect]
     Active Substance: TOCILIZUMAB
     Indication: RHEUMATOID ARTHRITIS
     Route: 042
     Dates: start: 20100412
  6. ROACTEMRA [Suspect]
     Active Substance: TOCILIZUMAB
     Route: 042
     Dates: start: 20140106

REACTIONS (8)
  - Metastasis [Unknown]
  - Aspergilloma [Unknown]
  - Cholestasis [Unknown]
  - Salivary gland cancer [Fatal]
  - Pleomorphic adenoma [Not Recovered/Not Resolved]
  - Post procedural fistula [Unknown]
  - Carotid artery stenosis [Unknown]
  - Coagulopathy [Unknown]

NARRATIVE: CASE EVENT DATE: 2012
